FAERS Safety Report 19193014 (Version 2)
Quarter: 2021Q3

REPORT INFORMATION
  Report Type: Spontaneous
  Country: IT (occurrence: IT)
  Receive Date: 20210429
  Receipt Date: 20210817
  Transmission Date: 20211014
  Serious: Yes (Other)
  Sender: FDA-Public Use
  Company Number: IT-ORGANON-O2104ITA001691

PATIENT
  Age: 71 Year
  Sex: Male

DRUGS (47)
  1. ETORICOXIB. [Concomitant]
     Active Substance: ETORICOXIB
     Dosage: UNK
     Dates: start: 201703
  2. NALOXONE [Concomitant]
     Active Substance: NALOXONE
     Dosage: 20 MILLIGRAM, ONE TO 3 TIMES A DAY
     Dates: start: 201806
  3. PREGABALIN. [Concomitant]
     Active Substance: PREGABALIN
     Dosage: UP TO 150+75 MG PER DAY
     Dates: start: 202007
  4. ALPRAZOLAM. [Suspect]
     Active Substance: ALPRAZOLAM
     Indication: PAIN
  5. PRULIFLOXACIN [Suspect]
     Active Substance: PRULIFLOXACIN
     Indication: HYPERTONIC BLADDER
     Dosage: UNK
     Dates: start: 2017
  6. LEVOFLOXACIN. [Suspect]
     Active Substance: LEVOFLOXACIN
     Indication: HYPERTONIC BLADDER
  7. BECLOMETHASONE [BECLOMETASONE] [Concomitant]
     Active Substance: BECLOMETHASONE
     Indication: HYPERTONIC BLADDER
     Dosage: UNK
     Route: 054
     Dates: start: 201703
  8. DICLOREUM [DICLOFENAC] [Concomitant]
     Active Substance: DICLOFENAC
     Dosage: 100 MILLIGRAM
  9. SERENOA REPENS [Concomitant]
     Active Substance: SERENOA REPENS WHOLE
     Indication: HYPERTONIC BLADDER
     Dosage: UNK
     Dates: start: 201703
  10. MIRTAZAPINE. [Suspect]
     Active Substance: MIRTAZAPINE
     Indication: AFFECTIVE DISORDER
     Dosage: 30 MILLIGRAM
     Dates: start: 2010, end: 2020
  11. PAROXETINE. [Suspect]
     Active Substance: PAROXETINE
     Indication: AFFECTIVE DISORDER
  12. CIPROFLOXACIN. [Suspect]
     Active Substance: CIPROFLOXACIN
     Indication: PROSTATIC ADENOMA
  13. ALPRAZOLAM. [Suspect]
     Active Substance: ALPRAZOLAM
     Indication: SLEEP DISORDER
     Dosage: 1 MILLIGRAM, TID
     Route: 048
     Dates: start: 2013
  14. ALPRAZOLAM. [Suspect]
     Active Substance: ALPRAZOLAM
     Indication: HYPOAESTHESIA
  15. ALFUZOSIN [Suspect]
     Active Substance: ALFUZOSIN
     Indication: HYPERTONIC BLADDER
     Dosage: UNK
     Dates: start: 201703
  16. SOLIFENACIN [Concomitant]
     Active Substance: SOLIFENACIN
     Indication: BENIGN PROSTATIC HYPERPLASIA
     Dosage: UNK
     Dates: start: 2014
  17. LACTULOSE. [Concomitant]
     Active Substance: LACTULOSE
     Dosage: IN THE EVENING REGULATED
  18. SERTRALINE [Concomitant]
     Active Substance: SERTRALINE HYDROCHLORIDE
     Indication: MEMORY IMPAIRMENT
     Dosage: UNK
  19. PRULIFLOXACIN [Concomitant]
     Active Substance: PRULIFLOXACIN
     Dosage: UNK
     Dates: start: 201703
  20. MIRTAZAPINE. [Suspect]
     Active Substance: MIRTAZAPINE
     Indication: MEMORY IMPAIRMENT
     Dosage: UNK
     Route: 048
     Dates: start: 2010, end: 2020
  21. TROSPIUM [Suspect]
     Active Substance: TROSPIUM
     Indication: HYPERPLASIA
     Dosage: UNK
     Route: 048
     Dates: start: 201703
  22. LEVOFLOXACIN. [Suspect]
     Active Substance: LEVOFLOXACIN
     Indication: PROSTATIC ADENOMA
     Dosage: 500 MILLIGRAM
     Route: 048
     Dates: start: 201703
  23. KETOROLAC [Suspect]
     Active Substance: KETOROLAC TROMETHAMINE
     Indication: PAIN
     Dosage: UNK
  24. MIRTAZAPINE. [Concomitant]
     Active Substance: MIRTAZAPINE
     Indication: AFFECTIVE DISORDER
     Dosage: UNK
     Dates: start: 2020
  25. QUETIAPINE. [Concomitant]
     Active Substance: QUETIAPINE
     Dosage: 25 MILLIGRAM, IN THE EVENING
  26. MOMETASONE FUROATE. [Concomitant]
     Active Substance: MOMETASONE FUROATE
     Dosage: UNK UNK, PRN
  27. MACROGOL [Concomitant]
     Active Substance: POLYETHYLENE GLYCOLS
     Dosage: 400 MILLIGRAM
  28. ENOXAPARIN [Concomitant]
     Active Substance: ENOXAPARIN
     Dosage: UNK
     Route: 058
  29. AMIKACIN. [Concomitant]
     Active Substance: AMIKACIN
     Dosage: UNK UNK, BID
  30. TROSPIUM [Concomitant]
     Active Substance: TROSPIUM
     Indication: HYPERTONIC BLADDER
     Dosage: UNK
  31. SERTRALINE [Suspect]
     Active Substance: SERTRALINE HYDROCHLORIDE
     Indication: MEMORY IMPAIRMENT
     Dosage: UNK
     Route: 048
     Dates: start: 2010, end: 2020
  32. MIRABEGRON [Concomitant]
     Active Substance: MIRABEGRON
     Indication: DYSURIA
  33. FESOTERODINE [Concomitant]
     Active Substance: FESOTERODINE
     Dosage: UNK
  34. OXYBUTYNIN. [Concomitant]
     Active Substance: OXYBUTYNIN CHLORIDE
     Indication: HYPERTONIC BLADDER
     Dosage: UNK
     Dates: start: 2017
  35. SILODOSIN. [Concomitant]
     Active Substance: SILODOSIN
     Dosage: 8 MILLIGRAM, QD
  36. PAROXETINE. [Suspect]
     Active Substance: PAROXETINE
     Indication: MEMORY IMPAIRMENT
     Dosage: UNK
     Route: 048
     Dates: start: 2010, end: 2020
  37. CIPROFLOXACIN. [Suspect]
     Active Substance: CIPROFLOXACIN
     Indication: HYPERTONIC BLADDER
     Dosage: UNK
     Route: 048
     Dates: start: 201703
  38. ETORICOXIB. [Concomitant]
     Active Substance: ETORICOXIB
     Dosage: 60 MILLIGRAM (60 MG FOR 2 WEEKS)
  39. MIRABEGRON [Concomitant]
     Active Substance: MIRABEGRON
     Indication: BENIGN PROSTATIC HYPERPLASIA
     Dosage: UNK
  40. MEROPENEM. [Concomitant]
     Active Substance: MEROPENEM
     Dosage: UNK
  41. SERTRALINE [Concomitant]
     Active Substance: SERTRALINE HYDROCHLORIDE
     Indication: AFFECTIVE DISORDER
  42. VENLAFAXINE [Concomitant]
     Active Substance: VENLAFAXINE HYDROCHLORIDE
     Dosage: 37.5 MG IN THE MORNING FOR SEVEN
  43. SERTRALINE [Suspect]
     Active Substance: SERTRALINE HYDROCHLORIDE
     Indication: AFFECTIVE DISORDER
  44. PARACETAMOL [Suspect]
     Active Substance: ACETAMINOPHEN
     Indication: PAIN
     Dosage: UNK
  45. OXIBUTININA [OXYBUTYNIN] [Suspect]
     Active Substance: OXYBUTYNIN
     Indication: PAIN
     Dosage: UNK
     Dates: start: 201703
  46. MIRTAZAPINE. [Concomitant]
     Active Substance: MIRTAZAPINE
     Indication: MEMORY IMPAIRMENT
  47. CODEINE [Concomitant]
     Active Substance: CODEINE
     Dosage: UNK

REACTIONS (28)
  - Cystitis interstitial [Unknown]
  - Depression [Recovering/Resolving]
  - Weight decreased [Unknown]
  - Urethral stenosis [Recovered/Resolved]
  - Rash [Unknown]
  - Nervous system disorder [Recovered/Resolved]
  - Salivary gland disorder [Recovered/Resolved]
  - Micturition urgency [Recovering/Resolving]
  - Klebsiella infection [Unknown]
  - Sleep disorder [Recovered/Resolved]
  - Oliguria [Recovered/Resolved]
  - Drug ineffective [Unknown]
  - Parapsoriasis [Unknown]
  - Hypertonic bladder [Recovered/Resolved]
  - Oral candidiasis [Recovered/Resolved]
  - Insomnia [Recovered/Resolved]
  - Abdominal pain [Unknown]
  - Condition aggravated [Recovering/Resolving]
  - Hypoaesthesia [Recovered/Resolved]
  - Intentional product misuse [Unknown]
  - Benign prostatic hyperplasia [Recovered/Resolved]
  - Product use in unapproved indication [Unknown]
  - Escherichia infection [Recovered/Resolved]
  - Constipation [Unknown]
  - Perineal pain [Unknown]
  - Tendon disorder [Unknown]
  - Dysuria [Unknown]
  - Exostosis [Unknown]

NARRATIVE: CASE EVENT DATE: 2013
